FAERS Safety Report 24877917 (Version 1)
Quarter: 2025Q1

REPORT INFORMATION
  Report Type: Spontaneous
  Country: US (occurrence: US)
  Receive Date: 20250123
  Receipt Date: 20250123
  Transmission Date: 20250409
  Serious: Yes (Other)
  Sender: RANBAXY
  Company Number: US-SUN PHARMACEUTICAL INDUSTRIES LTD-2025R1-489938

PATIENT
  Age: 59 Year
  Sex: Female

DRUGS (6)
  1. VALPROIC ACID [Suspect]
     Active Substance: VALPROIC ACID
     Indication: Parkinsonism
     Route: 065
  2. SERTRALINE [Suspect]
     Active Substance: SERTRALINE HYDROCHLORIDE
     Indication: Parkinsonism
     Route: 065
  3. MIRTAZAPINE [Suspect]
     Active Substance: MIRTAZAPINE
     Indication: Parkinsonism
     Route: 065
  4. QUETIAPINE [Suspect]
     Active Substance: QUETIAPINE
     Indication: Parkinsonism
     Dosage: 100 MILLIGRAM, DAILY
     Route: 065
  5. QUETIAPINE [Suspect]
     Active Substance: QUETIAPINE
     Dosage: 600 MILLIGRAM, DAILY
     Route: 065
  6. DEFERIPRONE [Suspect]
     Active Substance: DEFERIPRONE
     Indication: Parkinsonism
     Route: 065

REACTIONS (1)
  - Neuroleptic malignant syndrome [Unknown]
